FAERS Safety Report 23457338 (Version 1)
Quarter: 2024Q1

REPORT INFORMATION
  Report Type: Spontaneous
  Country: IT (occurrence: IT)
  Receive Date: 20240130
  Receipt Date: 20240130
  Transmission Date: 20240409
  Serious: Yes (Other)
  Sender: FDA-Public Use
  Company Number: None

PATIENT
  Age: 81 Year
  Sex: Male

DRUGS (4)
  1. XARELTO [Suspect]
     Active Substance: RIVAROXABAN
     Indication: Product used for unknown indication
     Dosage: 20 MG
     Route: 048
  2. MAGALDRATE [Concomitant]
     Active Substance: MAGALDRATE
     Indication: Gastrointestinal disorder
     Dosage: RIOPAN*OS SOSP 40BS80MG/ML10ML  1 BS/DIE PRIMA DEI PASTI
     Route: 048
     Dates: start: 2023
  3. ATORVASTATIN [Concomitant]
     Active Substance: ATORVASTATIN
     Indication: Dyslipidaemia
     Dosage: TORVAST*30CPR RIV 40MG  1 CP/DIE LA SERA
     Route: 048
     Dates: start: 2023
  4. PANTOPRAZOLE SODIUM [Concomitant]
     Active Substance: PANTOPRAZOLE SODIUM
     Indication: Gastrointestinal disorder
     Dosage: PANTOPRAZOLO MY*28CPR 20MG  1 CP/DIE LA MATTINA
     Route: 048
     Dates: start: 2023

REACTIONS (3)
  - Renal failure [Recovered/Resolved]
  - Glomerular filtration rate decreased [Recovered/Resolved]
  - Blood creatinine increased [Recovered/Resolved]

NARRATIVE: CASE EVENT DATE: 20220901
